FAERS Safety Report 19050945 (Version 2)
Quarter: 2021Q2

REPORT INFORMATION
  Report Type: Spontaneous
  Country: US (occurrence: US)
  Receive Date: 20210323
  Receipt Date: 20210408
  Transmission Date: 20210717
  Serious: No
  Sender: FDA-Public Use
  Company Number: US-IGSA-BIG0013766

PATIENT
  Age: 10 Year
  Sex: Male
  Weight: 23.4 kg

DRUGS (9)
  1. DIPHENHYDRAMINE. [Concomitant]
     Active Substance: DIPHENHYDRAMINE
     Indication: PREMEDICATION
     Dosage: 22.3 MILLIGRAM, QD
     Route: 048
     Dates: start: 20210125, end: 20210125
  2. GAMUNEX?C [Suspect]
     Active Substance: HUMAN IMMUNOGLOBULIN G
     Indication: KIDNEY TRANSPLANT REJECTION
     Dosage: 20 GRAM, Q.2WK.
     Route: 042
     Dates: start: 20210125, end: 20210125
  3. SIROLIMUS. [Concomitant]
     Active Substance: SIROLIMUS
  4. PREDNISONE. [Concomitant]
     Active Substance: PREDNISONE
  5. GAMUNEX?C [Suspect]
     Active Substance: HUMAN IMMUNOGLOBULIN G
     Dosage: 20 GRAM, Q.2WK.
     Route: 042
     Dates: start: 201707
  6. ATOVAQUONE. [Concomitant]
     Active Substance: ATOVAQUONE
  7. PANTOPRAZOLE [Concomitant]
     Active Substance: PANTOPRAZOLE
  8. TACROLIMUS. [Concomitant]
     Active Substance: TACROLIMUS
  9. ACETAMINOPHEN. [Concomitant]
     Active Substance: ACETAMINOPHEN
     Indication: PREMEDICATION
     Dosage: 336 MILLIGRAM, QD
     Route: 048
     Dates: start: 20210125, end: 20210125

REACTIONS (2)
  - Erythema [Recovered/Resolved]
  - Urticaria [Recovered/Resolved]

NARRATIVE: CASE EVENT DATE: 20210125
